FAERS Safety Report 15367188 (Version 1)
Quarter: 2018Q3

REPORT INFORMATION
  Report Type: Spontaneous
  Country: US (occurrence: US)
  Receive Date: 20180903
  Receipt Date: 20180903
  Transmission Date: 20181010
  Serious: Yes (Disabling, Other)
  Sender: FDA-Public Use
  Company Number: None

PATIENT
  Age: 39 Year
  Sex: Female
  Weight: 70.76 kg

DRUGS (9)
  1. PROAIR HFA [Concomitant]
     Active Substance: ALBUTEROL SULFATE
  2. VITAMIN D [Concomitant]
     Active Substance: CHOLECALCIFEROL
  3. VIT A [Concomitant]
  4. TYLENOL [Concomitant]
     Active Substance: ACETAMINOPHEN
  5. ZYRTEC [Concomitant]
     Active Substance: CETIRIZINE HYDROCHLORIDE
  6. FAMVIR [Concomitant]
     Active Substance: FAMCICLOVIR
  7. DEPAKOTE [Suspect]
     Active Substance: DIVALPROEX SODIUM
     Indication: SEIZURE
     Dosage: ?          QUANTITY:60 CAPSULE(S);?
     Route: 048
  8. XALATAN [Concomitant]
     Active Substance: LATANOPROST
  9. MAGNESIUM [Concomitant]
     Active Substance: MAGNESIUM

REACTIONS (9)
  - Drug hypersensitivity [None]
  - Menorrhagia [None]
  - Clumsiness [None]
  - Balance disorder [None]
  - Bone pain [None]
  - Joint swelling [None]
  - Peripheral swelling [None]
  - Vision blurred [None]
  - Hallucination [None]

NARRATIVE: CASE EVENT DATE: 20180330
